FAERS Safety Report 4921398-1 (Version None)
Quarter: 2006Q1

REPORT INFORMATION
  Report Type: 
  Country: None (occurrence: None)
  Receive Date: 20060224
  Receipt Date: 20060124
  Transmission Date: 20060701
  Serious: Yes (Other)
  Sender: FDA-Public Use
  Company Number: US-AMGEN-US166591

PATIENT

DRUGS (4)
  1. PROCRIT [Suspect]
     Indication: ANAEMIA OF MALIGNANT DISEASE
     Route: 058
     Dates: start: 20010301, end: 20051228
  2. RITUXIMAB [Concomitant]
     Dates: start: 20040201
  3. CYCLOSPORINE [Concomitant]
     Dates: start: 20050823, end: 20051212
  4. PREDNISONE TAB [Concomitant]
     Dates: start: 20050823, end: 20051212

REACTIONS (2)
  - APLASIA PURE RED CELL [None]
  - THERAPEUTIC RESPONSE DECREASED [None]
